FAERS Safety Report 8795970 (Version 1)
Quarter: 2012Q4

REPORT INFORMATION
  Report Type: 
  Country: CA (occurrence: CA)
  Receive Date: 20120920
  Receipt Date: 20120920
  Transmission Date: 20130627
  Serious: Yes (Hospitalization, Other)
  Sender: FDA-Public Use
  Company Number: CA-ASTRAZENECA-2012SE71210

PATIENT
  Age: 74 Year
  Sex: Male
  Weight: 102 kg

DRUGS (11)
  1. ZOLADEX [Suspect]
     Route: 058
  2. ADVAIR [Concomitant]
  3. ATROVENT [Concomitant]
  4. BICALUTAMIDE [Concomitant]
  5. EZETROL [Concomitant]
  6. FERROUS FUMARATE [Concomitant]
  7. FLUOXETINE [Concomitant]
  8. INSULIN [Concomitant]
  9. LEVOTHYROXINE [Concomitant]
  10. RISPERIDONE [Concomitant]
  11. SALBUTAMOL [Concomitant]

REACTIONS (6)
  - Blood cortisol decreased [Unknown]
  - Hypopituitarism [Unknown]
  - Malaise [Unknown]
  - Somnolence [Unknown]
  - Pituitary haemorrhage [Unknown]
  - Pituitary tumour [Unknown]
